FAERS Safety Report 25931377 (Version 1)
Quarter: 2025Q4

REPORT INFORMATION
  Report Type: Spontaneous
  Country: EU (occurrence: EU)
  Receive Date: 20251016
  Receipt Date: 20251016
  Transmission Date: 20260117
  Serious: Yes (Hospitalization, Other)
  Sender: BRISTOL-MYERS SQUIBB COMPANY
  Company Number: EU-BRISTOL-MYERS SQUIBB COMPANY-2025-140172

PATIENT
  Age: 51 Year
  Sex: Female

DRUGS (2)
  1. NELVUTAMIG [Suspect]
     Active Substance: NELVUTAMIG
     Indication: Metastatic malignant melanoma
     Dosage: BODY WEIGHT
  2. NIVOLUMAB [Suspect]
     Active Substance: NIVOLUMAB
     Indication: Metastatic malignant melanoma
     Dosage: BODY WEIGHT

REACTIONS (4)
  - Guillain-Barre syndrome [Recovering/Resolving]
  - COVID-19 [Unknown]
  - Pneumonia [Unknown]
  - Chronic inflammatory demyelinating polyradiculoneuropathy [Recovering/Resolving]

NARRATIVE: CASE EVENT DATE: 20210401
